FAERS Safety Report 6870920-7 (Version None)
Quarter: 2010Q3

REPORT INFORMATION
  Report Type: 
  Country: None (occurrence: None)
  Receive Date: 20100723
  Receipt Date: 20100715
  Transmission Date: 20110219
  Serious: Yes (Other)
  Sender: FDA-Public Use
  Company Number: US-ASTRAZENECA-2009UW13919

PATIENT
  Age: 42 Year
  Sex: Female
  Weight: 101.2 kg

DRUGS (4)
  1. SEROQUEL [Suspect]
     Indication: BIPOLAR DISORDER
     Route: 048
  2. CLONIDINE [Concomitant]
  3. STRATTERA [Concomitant]
  4. WELLBUTRIN [Concomitant]

REACTIONS (3)
  - MYOCARDIAL INFARCTION [None]
  - TRANSPLANT [None]
  - VISION BLURRED [None]
